FAERS Safety Report 8735079 (Version 2)
Quarter: 2012Q4

REPORT INFORMATION
  Report Type: Report from Study
  Country: US (occurrence: US)
  Receive Date: 20120821
  Receipt Date: 20121024
  Transmission Date: 20130627
  Serious: No
  Sender: FDA-Public Use
  Company Number: US-009507513-1208USA007736

PATIENT
  Sex: Female

DRUGS (4)
  1. RIBAVIRIN [Suspect]
     Dosage: 1000 mg in divided dose (1 in 1 D)
     Dates: start: 20120323
  2. VICTRELIS [Suspect]
     Indication: HEPATITIS C
     Dosage: UNK, tid
     Dates: start: 20120420
  3. PEGINTERFERON ALFA-2A [Suspect]
     Indication: HEPATITIS C
     Dosage: 180 Microgram, qw
     Dates: start: 20120323
  4. WELLBUTRIN [Concomitant]

REACTIONS (12)
  - Pain [Unknown]
  - Myalgia [Unknown]
  - Fatigue [Unknown]
  - Dysgeusia [Unknown]
  - Feeling abnormal [Unknown]
  - Emotional disorder [Unknown]
  - Oral candidiasis [Unknown]
  - Fungal infection [Unknown]
  - Furuncle [Unknown]
  - Malaise [Unknown]
  - Headache [Unknown]
  - Anaemia [Unknown]
